FAERS Safety Report 18700174 (Version 2)
Quarter: 2021Q1

REPORT INFORMATION
  Report Type: Report from Study
  Country: ES (occurrence: ES)
  Receive Date: 20210105
  Receipt Date: 20210113
  Transmission Date: 20210419
  Serious: Yes (Hospitalization)
  Sender: FDA-Public Use
  Company Number: NVSC2020ES345381

PATIENT
  Age: 88 Year
  Sex: Female
  Weight: 57 kg

DRUGS (4)
  1. EUTIROX [Concomitant]
     Active Substance: LEVOTHYROXINE SODIUM
     Indication: HYPOTHYROIDISM
     Dosage: 100 UG
     Route: 065
  2. FENTANILO [Suspect]
     Active Substance: FENTANYL
     Indication: PAIN
     Dosage: UNK (75 MCG/H)
     Route: 065
     Dates: start: 20201020
  3. VALSARTAN. [Concomitant]
     Active Substance: VALSARTAN
     Indication: HYPERTENSION
     Dosage: 40 MG
     Route: 065
  4. INC280 [Suspect]
     Active Substance: CAPMATINIB
     Indication: LUNG CANCER METASTATIC
     Dosage: 400 MG, Q12H
     Route: 048
     Dates: start: 20201001, end: 20201116

REACTIONS (4)
  - Oedema [Recovered/Resolved]
  - Asthenia [Recovering/Resolving]
  - Dizziness [Recovering/Resolving]
  - Nausea [Recovered/Resolved]

NARRATIVE: CASE EVENT DATE: 20201110
